FAERS Safety Report 4566670-2 (Version None)
Quarter: 2005Q1

REPORT INFORMATION
  Report Type: 
  Country: None (occurrence: None)
  Receive Date: 20050126
  Receipt Date: 20050107
  Transmission Date: 20050727
  Serious: Yes (Disabling)
  Sender: FDA-Public Use
  Company Number: US_0412109477

PATIENT
  Sex: Female
  Weight: 49 kg

DRUGS (2)
  1. HUMULIN 70/30 [Suspect]
     Dosage: 40 U IN THE MORNING
     Dates: start: 20020101
  2. HUMULIN R [Suspect]
     Dates: start: 20020101

REACTIONS (10)
  - BEDRIDDEN [None]
  - BLOOD GLUCOSE INCREASED [None]
  - BODY HEIGHT DECREASED [None]
  - DRUG HYPERSENSITIVITY [None]
  - DYSPHAGIA [None]
  - INJECTION SITE HAEMORRHAGE [None]
  - SOMOGYI PHENOMENON [None]
  - STRESS [None]
  - UNDERWEIGHT [None]
  - VOMITING [None]
